FAERS Safety Report 9798479 (Version 1)
Quarter: 2013Q4

REPORT INFORMATION
  Report Type: Spontaneous
  Country: IN (occurrence: None)
  Receive Date: 20131231
  Receipt Date: 20131231
  Transmission Date: 20140711
  Serious: Yes (Congenital Anomaly)
  Sender: FDA-Public Use
  Company Number: 2013P1022179

PATIENT
  Age: 4 Year
  Sex: Male
  Weight: 14 kg

DRUGS (2)
  1. VALPROIC ACID [Suspect]
     Dosage: 1000 MG; QD ; TRPL
     Route: 064
  2. FOLIC ACID (CON.) [Concomitant]

REACTIONS (18)
  - Maternal drugs affecting foetus [None]
  - Dysmorphism [None]
  - Craniosynostosis [None]
  - Hypotelorism of orbit [None]
  - Motor developmental delay [None]
  - Speech disorder developmental [None]
  - High arched palate [None]
  - Nose deformity [None]
  - Anomaly of external ear congenital [None]
  - Microstomia [None]
  - Dysmorphism [None]
  - Finger deformity [None]
  - Iris coloboma [None]
  - Retinal coloboma [None]
  - Choroidal coloboma [None]
  - Anisometropia [None]
  - Astigmatism [None]
  - Foetal anticonvulsant syndrome [None]
